FAERS Safety Report 23981141 (Version 1)
Quarter: 2024Q2

REPORT INFORMATION
  Report Type: Spontaneous
  Country: US (occurrence: None)
  Receive Date: 20240614
  Receipt Date: 20240614
  Transmission Date: 20240716
  Serious: Yes (Disabling)
  Sender: FDA-Public Use
  Company Number: None

PATIENT
  Age: 16 Year
  Sex: Male
  Weight: 64.35 kg

DRUGS (2)
  1. MONTELUKAST [Suspect]
     Active Substance: MONTELUKAST SODIUM
     Indication: Seasonal allergy
     Dosage: 1 TABLET AT BEDTIME ORAL
     Route: 048
     Dates: start: 20140514, end: 20160505
  2. MONTELUKAST [Suspect]
     Active Substance: MONTELUKAST SODIUM
     Indication: Asthma

REACTIONS (8)
  - Major depression [None]
  - Suicidal ideation [None]
  - Amnesia [None]
  - Oropharyngeal pain [None]
  - Product label issue [None]
  - Adverse drug reaction [None]
  - Emotional distress [None]
  - Mental disorder [None]

NARRATIVE: CASE EVENT DATE: 20140514
